FAERS Safety Report 6085427-7 (Version None)
Quarter: 2009Q1

REPORT INFORMATION
  Report Type: 
  Country: None (occurrence: None)
  Receive Date: 20090217
  Receipt Date: 20081105
  Transmission Date: 20090719
  Serious: No
  Sender: FDA-Public Use
  Company Number: WAES 0811USA00740

PATIENT
  Age: 66 Year
  Sex: Male

DRUGS (3)
  1. ZOLINZA [Suspect]
     Indication: MYCOSIS FUNGOIDES
     Dosage: 400 MG/DAILY/PO
     Route: 048
     Dates: start: 20080401
  2. ALLOPURINOL [Concomitant]
  3. ASPIRIN [Concomitant]

REACTIONS (1)
  - CHEST PAIN [None]
